FAERS Safety Report 8011356-5 (Version None)
Quarter: 2011Q4

REPORT INFORMATION
  Report Type: 
  Country: None (occurrence: None)
  Receive Date: 20111228
  Receipt Date: 20111228
  Transmission Date: 20120403
  Serious: Yes (Hospitalization)
  Sender: FDA-Public Use
  Company Number: None

PATIENT
  Age: 79 Year
  Sex: Female
  Weight: 762.94 kg

DRUGS (2)
  1. METFORMIN HCL [Suspect]
     Indication: TYPE 2 DIABETES MELLITUS
     Dosage: 1000 MG
     Route: 048
     Dates: start: 20050101, end: 20111223
  2. GLIPIZIDE [Concomitant]
     Route: 048

REACTIONS (7)
  - RENAL FAILURE ACUTE [None]
  - HYPOGLYCAEMIA [None]
  - MENTAL STATUS CHANGES [None]
  - RESPIRATORY DISTRESS [None]
  - DEHYDRATION [None]
  - LACTIC ACIDOSIS [None]
  - METABOLIC ACIDOSIS [None]
